FAERS Safety Report 23311071 (Version 1)
Quarter: 2023Q4

REPORT INFORMATION
  Report Type: Report from Study
  Country: DE (occurrence: DE)
  Receive Date: 20231218
  Receipt Date: 20231218
  Transmission Date: 20240110
  Serious: Yes (Hospitalization, Other)
  Sender: FDA-Public Use
  Company Number: DE-JNJFOC-20190805636

PATIENT
  Age: 5 Decade
  Sex: Female

DRUGS (19)
  1. INFLIXIMAB [Suspect]
     Active Substance: INFLIXIMAB
     Indication: Axial spondyloarthritis
     Dosage: 120 MG, EVERY 2 WEEKS
     Route: 065
     Dates: start: 20210915, end: 20210930
  2. INFLIXIMAB [Suspect]
     Active Substance: INFLIXIMAB
     Indication: Ankylosing spondylitis
     Dosage: 120 MG, EVERY 2 WEEKS
     Route: 065
     Dates: start: 20211015, end: 20220710
  3. METHOTREXATE SODIUM [Suspect]
     Active Substance: METHOTREXATE SODIUM
     Indication: Ankylosing spondylitis
     Dosage: 10 MG
     Route: 048
     Dates: start: 20120101
  4. METHOTREXATE SODIUM [Suspect]
     Active Substance: METHOTREXATE SODIUM
     Dosage: 5 MG
     Route: 048
     Dates: start: 20120101, end: 20181115
  5. METHOTREXATE SODIUM [Suspect]
     Active Substance: METHOTREXATE SODIUM
     Dosage: 5 MG, WEEKLY
     Route: 048
     Dates: start: 20190404
  6. METHOTREXATE SODIUM [Suspect]
     Active Substance: METHOTREXATE SODIUM
     Dosage: UNK
     Route: 048
     Dates: start: 20210915
  7. INFLECTRA [Suspect]
     Active Substance: INFLIXIMAB-DYYB
     Indication: Ankylosing spondylitis
     Dosage: 400 MG
     Route: 065
     Dates: start: 20220807
  8. INFLECTRA [Suspect]
     Active Substance: INFLIXIMAB-DYYB
     Indication: Axial spondyloarthritis
  9. INFLIXIMAB [Suspect]
     Active Substance: INFLIXIMAB
     Indication: Ankylosing spondylitis
     Dosage: 5 MG, WEEKLY
     Route: 048
     Dates: start: 20120101, end: 20181105
  10. INFLIXIMAB [Suspect]
     Active Substance: INFLIXIMAB
     Indication: Axial spondyloarthritis
     Dosage: 5 MG, WEEKLY
     Route: 048
     Dates: start: 20190404
  11. SIMPONI [Suspect]
     Active Substance: GOLIMUMAB
     Indication: Ankylosing spondylitis
     Dosage: 50 MG, EVERY 4 WEEKS
     Route: 058
     Dates: start: 20180226, end: 20191010
  12. SIMPONI [Suspect]
     Active Substance: GOLIMUMAB
     Indication: Axial spondyloarthritis
     Dosage: 50 MG, EVERY 6 WEEKS
     Route: 058
     Dates: start: 20191128
  13. SIMPONI [Suspect]
     Active Substance: GOLIMUMAB
     Dosage: 50 MG, EVERY 4 WEEKS
     Route: 058
     Dates: start: 20200502, end: 20210515
  14. SIMPONI [Suspect]
     Active Substance: GOLIMUMAB
     Dosage: 100 MG, EVERY 4 WEEKS
     Route: 058
     Dates: start: 20210615, end: 20210815
  15. CELECOXIB [Suspect]
     Active Substance: CELECOXIB
     Indication: Ankylosing spondylitis
     Dosage: 200 MG, 7 DAYS PER WEEK,  GEL FORMULATION
     Dates: start: 20170918, end: 20181105
  16. CELECOXIB [Suspect]
     Active Substance: CELECOXIB
     Indication: Axial spondyloarthritis
     Dosage: 800 MG, 1X/WEEK, GEL FORMULATION
     Dates: start: 20190101, end: 20190501
  17. CELECOXIB [Suspect]
     Active Substance: CELECOXIB
     Dosage: 200 MG, 7 DAYS PER WEEK,  GEL FORMULATION
     Dates: start: 20191107, end: 20201215
  18. NAPROXEN [Suspect]
     Active Substance: NAPROXEN
     Indication: Axial spondyloarthritis
     Dosage: 500 MG, QD-7 DAYS PER WEEK
     Route: 065
     Dates: start: 20210608, end: 20220715
  19. ACEMETACIN [Concomitant]
     Active Substance: ACEMETACIN
     Dosage: 180 MG
     Route: 065
     Dates: start: 20181105, end: 20181108

REACTIONS (18)
  - Upper respiratory tract infection [Unknown]
  - Urinary tract infection [Unknown]
  - Laryngitis [Unknown]
  - Off label use [Unknown]
  - Product use issue [Unknown]
  - Osteochondrosis [Recovered/Resolved]
  - Ovarian cyst [Unknown]
  - Axial spondyloarthritis [Recovered/Resolved]
  - Intervertebral disc protrusion [Recovered/Resolved]
  - Multiple sclerosis [Unknown]
  - Postoperative adhesion [Recovered/Resolved]
  - Hypertonic bladder [Unknown]
  - Rotator cuff syndrome [Recovered/Resolved]
  - Residual urine volume increased [Recovered/Resolved]
  - Back pain [Recovered/Resolved]
  - Rash [Unknown]
  - Functional gastrointestinal disorder [Unknown]
  - Gastritis [Unknown]

NARRATIVE: CASE EVENT DATE: 20190304
